FAERS Safety Report 16563068 (Version 1)
Quarter: 2019Q3

REPORT INFORMATION
  Report Type: Spontaneous
  Country: US (occurrence: US)
  Receive Date: 20190711
  Receipt Date: 20190711
  Transmission Date: 20191004
  Serious: Yes (Other)
  Sender: FDA-Public Use
  Company Number: US-JNJFOC-20190706475

PATIENT
  Sex: Male
  Weight: 92.5 kg

DRUGS (5)
  1. DERMA-SMOOTHE/FS SCALP OIL [Concomitant]
  2. CLEOCIN T [Concomitant]
     Active Substance: CLINDAMYCIN PHOSPHATE
  3. TACLONEX SCALP [Concomitant]
     Active Substance: BETAMETHASONE DIPROPIONATE\CALCIPOTRIENE
  4. TREMFYA [Suspect]
     Active Substance: GUSELKUMAB
     Indication: PSORIASIS
     Route: 058
     Dates: start: 20171117
  5. KENALOG [Concomitant]
     Active Substance: TRIAMCINOLONE ACETONIDE

REACTIONS (2)
  - Transaminases increased [Not Recovered/Not Resolved]
  - Hepatosplenomegaly [Not Recovered/Not Resolved]
